FAERS Safety Report 8102786-1 (Version None)
Quarter: 2012Q1

REPORT INFORMATION
  Report Type: 
  Country: None (occurrence: None)
  Receive Date: 20120127
  Receipt Date: 20120123
  Transmission Date: 20120608
  Serious: Yes (Death)
  Sender: FDA-Public Use
  Company Number: 2012SP004153

PATIENT
  Age: 63 Year
  Sex: Male

DRUGS (1)
  1. POSACONAZOLE [Suspect]
     Dosage: PROPHYLAXIS

REACTIONS (4)
  - RENAL FAILURE [None]
  - RESPIRATORY FAILURE [None]
  - LABORATORY TEST ABNORMAL [None]
  - HEPATIC FAILURE [None]
